FAERS Safety Report 7688459-8 (Version None)
Quarter: 2011Q3

REPORT INFORMATION
  Report Type: 
  Country: None (occurrence: None)
  Receive Date: 20110817
  Receipt Date: 20110808
  Transmission Date: 20111222
  Serious: Yes (Death)
  Sender: FDA-Public Use
  Company Number: IN-ROXANE LABORATORIES, INC.-2011-RO-01127RO

PATIENT
  Age: 21 Year
  Sex: Male

DRUGS (3)
  1. PACITANE [Suspect]
     Indication: BIPOLAR DISORDER
  2. LITHIUM CARBONATE [Suspect]
     Indication: BIPOLAR DISORDER
  3. HALOPERIDOL [Suspect]
     Indication: BIPOLAR DISORDER

REACTIONS (1)
  - TOXICITY TO VARIOUS AGENTS [None]
